FAERS Safety Report 4478943-2 (Version None)
Quarter: 2004Q4

REPORT INFORMATION
  Report Type: 
  Country: None (occurrence: None)
  Receive Date: 20041014
  Receipt Date: 20041001
  Transmission Date: 20050328
  Serious: Yes (Death, Other)
  Sender: FDA-Public Use
  Company Number: 2004237015NO

PATIENT
  Age: 84 Year
  Sex: Female

DRUGS (9)
  1. ALDACTONE [Suspect]
     Indication: CARDIAC FAILURE
     Dosage: ORAL
     Route: 048
     Dates: start: 20040909, end: 20040912
  2. ESCITALOPRAM OXALATE [Suspect]
     Indication: DEPRESSION
     Dosage: 5 MG, QD, ORAL
     Route: 048
     Dates: start: 20040908, end: 20040912
  3. BETNOVAT (BETAMETHASONE) [Concomitant]
  4. WARFARIN SODIUM [Concomitant]
  5. AMOXICILLIN [Concomitant]
  6. PARACET [Concomitant]
  7. COZAAR [Concomitant]
  8. FUROSEMIDE [Concomitant]
  9. LIPITOR [Concomitant]

REACTIONS (10)
  - CRACKLES LUNG [None]
  - DYSPNOEA EXACERBATED [None]
  - HEPATIC FAILURE [None]
  - HEPATITIS [None]
  - HYPERHIDROSIS [None]
  - HYPERVENTILATION [None]
  - INTERNATIONAL NORMALISED RATIO INCREASED [None]
  - MULTI-ORGAN FAILURE [None]
  - PAIN [None]
  - PANCREATITIS [None]
